FAERS Safety Report 6614525-1 (Version None)
Quarter: 2010Q1

REPORT INFORMATION
  Report Type: 
  Country: None (occurrence: None)
  Receive Date: 20100304
  Receipt Date: 20100304
  Transmission Date: 20100710
  Serious: Yes (Hospitalization)
  Sender: FDA-Public Use
  Company Number: None

PATIENT
  Sex: Male
  Weight: 18.34 kg

DRUGS (3)
  1. CARBOPLATIN [Suspect]
     Dosage: 1052 MG
  2. ETOPOSIDE [Suspect]
     Dosage: 840 MG
  3. MELPHALAN HYDROCHLORIDE [Suspect]
     Dosage: 129 MG

REACTIONS (5)
  - FLUID OVERLOAD [None]
  - HAEMODYNAMIC INSTABILITY [None]
  - PERICARDIAL EFFUSION [None]
  - PLEURAL EFFUSION [None]
  - RESPIRATORY DISTRESS [None]
